FAERS Safety Report 11090629 (Version 1)
Quarter: 2015Q2

REPORT INFORMATION
  Report Type: Spontaneous
  Country: JP (occurrence: JP)
  Receive Date: 20150505
  Receipt Date: 20150505
  Transmission Date: 20150821
  Serious: Yes (Other)
  Sender: FDA-Public Use
  Company Number: JP-BRISTOL-MYERS SQUIBB COMPANY-BMS-2015-004268

PATIENT
  Sex: Male

DRUGS (1)
  1. KENALOG IN ORABASE [Suspect]
     Active Substance: TRIAMCINOLONE ACETONIDE
     Indication: BEHCET^S SYNDROME
     Dosage: UNK UNK, QD
     Route: 061

REACTIONS (4)
  - Lip haemorrhage [Unknown]
  - Off label use [Unknown]
  - Lip exfoliation [Unknown]
  - Drug ineffective [Unknown]
